FAERS Safety Report 4649348-6 (Version None)
Quarter: 2005Q2

REPORT INFORMATION
  Report Type: 
  Country: None (occurrence: None)
  Receive Date: 20050429
  Receipt Date: 20041112
  Transmission Date: 20051028
  Serious: Yes (Hospitalization)
  Sender: FDA-Public Use
  Company Number: JP-ABBOTT-04P-087-0280719-00

PATIENT
  Sex: Male

DRUGS (14)
  1. KALETRA [Suspect]
     Indication: HIV INFECTION
     Route: 048
     Dates: start: 20030902
  2. LAMIVUDINE [Concomitant]
     Indication: HIV INFECTION
     Route: 048
     Dates: start: 20030902
  3. STAVUDINE [Concomitant]
     Indication: HIV INFECTION
     Route: 048
     Dates: start: 20030902
  4. FLUNITRAZEPAM [Concomitant]
     Indication: INSOMNIA
     Dates: start: 20031024
  5. LEVOMEPROMAZINE [Concomitant]
     Indication: INSOMNIA
     Dates: start: 20031024
  6. BETAMETHASONE SODIUM PHOSPHATE [Concomitant]
     Indication: CYTOMEGALOVIRUS CHORIORETINITIS
     Dosage: X 3
     Route: 050
     Dates: start: 20030902
  7. LEVOFLOXACIN [Concomitant]
     Indication: CYTOMEGALOVIRUS CHORIORETINITIS
     Route: 050
     Dates: start: 20030902
  8. TROPICAMIDE [Concomitant]
     Indication: CYTOMEGALOVIRUS CHORIORETINITIS
     Dosage: X 3
     Route: 050
     Dates: start: 20030902
  9. VALGANCICLOVIR HYDROCHLORIDE [Concomitant]
     Indication: CYTOMEGALOVIRUS CHORIORETINITIS
     Dates: start: 20030925, end: 20031015
  10. SULFAMETHOXAZOLE AND TRIMETHOPRIM [Concomitant]
     Indication: INFECTION PROPHYLAXIS
     Dosage: X 1
     Dates: start: 20030908, end: 20040204
  11. FLUCONAZOLE [Concomitant]
     Indication: ANTIFUNGAL PROPHYLAXIS
     Dates: start: 20030823, end: 20030916
  12. FLUCONAZOLE [Concomitant]
     Dates: start: 20031016, end: 20031021
  13. MEROPENEM TRIHYDRATE [Concomitant]
     Indication: ENTEROCOLITIS
     Dates: start: 20031015, end: 20031021
  14. FAMOTIDINE [Concomitant]
     Indication: GASTRITIS EROSIVE
     Dates: start: 20031204

REACTIONS (14)
  - ABDOMINAL PAIN UPPER [None]
  - CITROBACTER INFECTION [None]
  - DEPRESSED MOOD [None]
  - DIARRHOEA [None]
  - DIZZINESS [None]
  - EROSIVE OESOPHAGITIS [None]
  - INFECTION IN AN IMMUNOCOMPROMISED HOST [None]
  - KLEBSIELLA INFECTION [None]
  - LYMPHADENOPATHY [None]
  - NAUSEA [None]
  - PAIN IN EXTREMITY [None]
  - PYREXIA [None]
  - VERTIGO POSITIONAL [None]
  - WHITE BLOOD CELL COUNT DECREASED [None]
